FAERS Safety Report 6199011-8 (Version None)
Quarter: 2009Q2

REPORT INFORMATION
  Report Type: 
  Country: None (occurrence: None)
  Receive Date: 20090520
  Receipt Date: 20090520
  Transmission Date: 20091009
  Serious: Yes (Life-Threatening, Hospitalization)
  Sender: FDA-Public Use
  Company Number: None

PATIENT
  Sex: Female
  Weight: 57.6068 kg

DRUGS (2)
  1. LYRICA [Suspect]
     Indication: FIBROMYALGIA
     Dosage: 50MGS 3X DAY PO
     Route: 048
     Dates: start: 20090505, end: 20090515
  2. LYRICA [Suspect]
     Indication: NEUROPATHY PERIPHERAL
     Dosage: 50MGS 3X DAY PO
     Route: 048
     Dates: start: 20090505, end: 20090515

REACTIONS (6)
  - BLISTER [None]
  - DYSPNOEA [None]
  - EYE SWELLING [None]
  - LIP SWELLING [None]
  - SKIN EXFOLIATION [None]
  - WHEEZING [None]
